FAERS Safety Report 19297447 (Version 1)
Quarter: 2021Q2

REPORT INFORMATION
  Report Type: Other
  Country: TH (occurrence: TH)
  Receive Date: 20210524
  Receipt Date: 20210524
  Transmission Date: 20210717
  Serious: Yes (Other)
  Sender: FDA-Public Use
  Company Number: TH-SQUARE-000020

PATIENT
  Age: 32 Year
  Sex: Male

DRUGS (2)
  1. ACYCLOVIR. [Suspect]
     Active Substance: ACYCLOVIR
     Indication: KERATOUVEITIS
     Route: 048
  2. ACYCLOVIR. [Suspect]
     Active Substance: ACYCLOVIR
     Indication: OPHTHALMIC HERPES SIMPLEX
     Route: 048

REACTIONS (5)
  - Neuritis [Recovered/Resolved]
  - Corneal lesion [Recovered/Resolved]
  - Conjunctival hyperaemia [Recovered/Resolved]
  - Anterior chamber inflammation [Recovered/Resolved]
  - Condition aggravated [Recovered/Resolved]
